FAERS Safety Report 5470244-9 (Version None)
Quarter: 2007Q3

REPORT INFORMATION
  Report Type: 
  Country: None (occurrence: None)
  Receive Date: 20070924
  Receipt Date: 20070910
  Transmission Date: 20080115
  Serious: Yes (Disabling)
  Sender: FDA-Public Use
  Company Number: 161248USA

PATIENT
  Age: 42 Year
  Sex: Male

DRUGS (1)
  1. PRAVASTATIN [Suspect]
     Indication: BLOOD CHOLESTEROL
     Dosage: (20 MG), ORAL
     Route: 048
     Dates: start: 20070601, end: 20070701

REACTIONS (4)
  - EAR DISCOMFORT [None]
  - HYPOACUSIS [None]
  - NERVE INJURY [None]
  - PHARMACEUTICAL PRODUCT COUNTERFEIT [None]
